FAERS Safety Report 6803376-0 (Version None)
Quarter: 2010Q2

REPORT INFORMATION
  Report Type: 
  Country: None (occurrence: None)
  Receive Date: 20100628
  Receipt Date: 20100616
  Transmission Date: 20101027
  Serious: Yes (Other)
  Sender: FDA-Public Use
  Company Number: US-PFIZER INC-2010064572

PATIENT
  Sex: Male
  Weight: 86.168 kg

DRUGS (9)
  1. ZOLOFT [Suspect]
     Indication: DEPRESSION
     Dosage: 50 MG, 1X/DAY
     Route: 048
     Dates: start: 20070101
  2. PROMETHAZINE [Concomitant]
     Indication: NAUSEA
     Dosage: UNK
  3. VALIUM [Concomitant]
     Indication: ANXIETY
     Dosage: 6 MG, 3X/DAY
  4. OXYCODONE [Concomitant]
     Dosage: UNK
  5. OXYCODONE [Concomitant]
     Dosage: FREQUENCY: 2X/DAY AS NEEDED,
     Route: 048
  6. NEXIUM [Concomitant]
     Indication: DYSPEPSIA
     Dosage: UNK
  7. VICODIN [Concomitant]
     Indication: PAIN
     Dosage: UNK
  8. OXYCONTIN [Concomitant]
     Dosage: FREQUENCY: 2X/DAY,
     Route: 048
  9. DIAZEPAM [Concomitant]
     Route: 048

REACTIONS (20)
  - ALANINE AMINOTRANSFERASE INCREASED [None]
  - ALCOHOL ABUSE [None]
  - ASPARTATE AMINOTRANSFERASE INCREASED [None]
  - BLOOD ALKALINE PHOSPHATASE INCREASED [None]
  - BLOOD IRON INCREASED [None]
  - DEAFNESS NEUROSENSORY [None]
  - DEPRESSION [None]
  - FAILURE TO THRIVE [None]
  - FALL [None]
  - FOOD ALLERGY [None]
  - HYPERCHOLESTEROLAEMIA [None]
  - HYPERLIPIDAEMIA [None]
  - HYPERTRIGLYCERIDAEMIA [None]
  - MEDICATION ERROR [None]
  - MEMORY IMPAIRMENT [None]
  - MYOFASCIAL PAIN SYNDROME [None]
  - OBSESSIVE-COMPULSIVE DISORDER [None]
  - OSTEOARTHRITIS [None]
  - PANIC DISORDER [None]
  - PODAGRA [None]
